FAERS Safety Report 16323598 (Version 1)
Quarter: 2019Q2

REPORT INFORMATION
  Report Type: Report from Study
  Country: CA (occurrence: CA)
  Receive Date: 20190517
  Receipt Date: 20190517
  Transmission Date: 20190711
  Serious: Yes (Hospitalization, Other)
  Sender: FDA-Public Use
  Company Number: CA-ROCHE-2319155

PATIENT
  Sex: Female

DRUGS (1)
  1. RITUXAN [Suspect]
     Active Substance: RITUXIMAB
     Indication: NEUROMYELITIS OPTICA SPECTRUM DISORDER
     Dosage: UNKNOWN
     Route: 042
     Dates: start: 20140401, end: 20140602

REACTIONS (3)
  - Osteoporosis [Unknown]
  - Neuromyelitis optica spectrum disorder [Unknown]
  - Colitis [Unknown]
